FAERS Safety Report 14936713 (Version 1)
Quarter: 2018Q2

REPORT INFORMATION
  Report Type: Report from Study
  Country: IT (occurrence: IT)
  Receive Date: 20180525
  Receipt Date: 20180525
  Transmission Date: 20180711
  Serious: Yes (Hospitalization)
  Sender: FDA-Public Use
  Company Number: IT-CONCORDIA PHARMACEUTICALS INC.-E2B_00011819

PATIENT
  Age: 86 Year
  Sex: Male

DRUGS (7)
  1. COUMADIN [Concomitant]
     Active Substance: WARFARIN SODIUM
     Indication: ATRIAL FIBRILLATION
     Route: 048
     Dates: start: 20180418
  2. DILTIAZEM DOC GENERICI 60 MG COMPRESSE [Suspect]
     Active Substance: DILTIAZEM
     Indication: TRICUSPID VALVE INCOMPETENCE
     Route: 048
     Dates: start: 20160101, end: 20180418
  3. METFORMINA TEVA 500 MG COMPRESSE RIVESTITE CON FILM [Concomitant]
     Indication: DIABETES MELLITUS
     Route: 048
     Dates: start: 20180418
  4. NITROGLICERINA EG 10 MG/24 ORE CEROTTI TRANSDERMICI [Concomitant]
     Indication: TRICUSPID VALVE INCOMPETENCE
     Route: 062
     Dates: start: 20160101
  5. FUROSEMIDE DOC GENERICI 25 MG COMPRESSE [Concomitant]
     Indication: HYPERTENSION
     Route: 048
     Dates: start: 20180418
  6. LANOXIN [Suspect]
     Active Substance: DIGOXIN
     Indication: TRICUSPID VALVE INCOMPETENCE
     Route: 048
     Dates: start: 20160101, end: 20180418
  7. LASITONE 25 MG + 37 MG CAPSULE RIGIDE [Concomitant]
     Indication: HYPERTENSION
     Route: 048
     Dates: start: 20180418

REACTIONS (2)
  - Syncope [Recovered/Resolved]
  - Bradycardia [Recovered/Resolved]

NARRATIVE: CASE EVENT DATE: 20180418
